FAERS Safety Report 4462601-4 (Version None)
Quarter: 2004Q3

REPORT INFORMATION
  Report Type: 
  Country: None (occurrence: None)
  Receive Date: 20040928
  Receipt Date: 20040914
  Transmission Date: 20050211
  Serious: Yes (Other)
  Sender: FDA-Public Use
  Company Number: 2004233959GB

PATIENT
  Age: 53 Year
  Sex: Female
  Weight: 97 kg

DRUGS (9)
  1. BEXTRA [Suspect]
     Indication: ARTHRITIS
     Dosage: 10 MG, QD, ORAL
     Route: 048
     Dates: start: 20040903, end: 20040909
  2. FEXOFENADINE HCL [Concomitant]
  3. FELODIPINE [Concomitant]
  4. BENDROFLUMETHIAZIDE [Concomitant]
  5. SALBUTAMOL (SALBUTAMOL) [Concomitant]
  6. DOXYCYCLINE [Concomitant]
  7. PREDNISOLONE [Concomitant]
  8. LEVOTHYROXINE SODIUM [Concomitant]
  9. VOLSAID - SLOW RELEASE [Concomitant]

REACTIONS (3)
  - DEPRESSED MOOD [None]
  - NIGHTMARE [None]
  - URTICARIA [None]
